FAERS Safety Report 12255002 (Version 1)
Quarter: 2016Q2

REPORT INFORMATION
  Report Type: Spontaneous
  Country: US (occurrence: US)
  Receive Date: 20160411
  Receipt Date: 20160411
  Transmission Date: 20160815
  Serious: Yes (Hospitalization)
  Sender: FDA-Public Use
  Company Number: US-TEIKOKU PHARMA USA-TPU2016-00237

PATIENT
  Sex: Female
  Weight: 79 kg

DRUGS (7)
  1. VALSARTAN. [Concomitant]
     Active Substance: VALSARTAN
     Indication: BLOOD PRESSURE MEASUREMENT
     Route: 048
     Dates: start: 2014
  2. LEVOTHYROXINE. [Concomitant]
     Active Substance: LEVOTHYROXINE
     Indication: THYROID DISORDER
     Route: 048
  3. ASPIRIN. [Concomitant]
     Active Substance: ASPIRIN
     Indication: COAGULATION TIME
     Route: 048
  4. LIDODERM [Suspect]
     Active Substance: LIDOCAINE
     Indication: NEURALGIA
     Dosage: 12 HOURS ON BACK AND LEGS
     Route: 061
     Dates: start: 2005
  5. FLUTICASONE [Concomitant]
     Active Substance: FLUTICASONE\FLUTICASONE PROPIONATE
     Indication: SINUS DISORDER
     Dosage: ONE SPRAY IN NOSTRIL DAILY FOR 3 DAYS AND THEN STOP FOR 1-2 DAYS.
     Route: 045
  6. ATROVASTATIN [Concomitant]
     Active Substance: ATORVASTATIN CALCIUM
     Indication: ATRIOVENTRICULAR BLOCK
     Route: 048
     Dates: start: 2014
  7. PROAIR HFA [Concomitant]
     Active Substance: ALBUTEROL SULFATE
     Indication: ASTHMA
     Dosage: INHALES ONE PUFF AS NEEDED

REACTIONS (9)
  - Headache [Not Recovered/Not Resolved]
  - Renal disorder [Unknown]
  - Immune system disorder [Not Recovered/Not Resolved]
  - Increased upper airway secretion [Not Recovered/Not Resolved]
  - Amnesia [Recovered/Resolved]
  - Nasopharyngitis [Not Recovered/Not Resolved]
  - Daydreaming [Recovered/Resolved]
  - Blood sodium decreased [Recovered/Resolved]
  - Angiopathy [Recovered/Resolved]

NARRATIVE: CASE EVENT DATE: 2013
